FAERS Safety Report 8142074-0 (Version None)
Quarter: 2012Q1

REPORT INFORMATION
  Report Type: 
  Country: None (occurrence: None)
  Receive Date: 20120216
  Receipt Date: 20120201
  Transmission Date: 20120608
  Serious: Yes (Other)
  Sender: FDA-Public Use
  Company Number: GB-ARROW GEN-2007A-01218

PATIENT
  Age: 68 Year
  Sex: Male
  Weight: 78 kg

DRUGS (11)
  1. FUROSEMIDE [Suspect]
     Dosage: 80MG TWICE DAILY
  2. ASPIRIN [Suspect]
     Indication: PRODUCT USED FOR UNKNOWN INDICATION
     Dosage: 75MG DAILY
  3. DIGOXIN [Suspect]
     Indication: PRODUCT USED FOR UNKNOWN INDICATION
     Dosage: 0.125MG DAILY
  4. EZETIMIBE [Suspect]
     Indication: PRODUCT USED FOR UNKNOWN INDICATION
     Dosage: 10MG DAILY
     Route: 048
  5. LANSOPRAZOLE [Suspect]
     Indication: PRODUCT USED FOR UNKNOWN INDICATION
     Dosage: 30MG DAILY
  6. BISOPROLOL FUMARATE [Suspect]
     Indication: PRODUCT USED FOR UNKNOWN INDICATION
     Dosage: 7.5MG DAILY
  7. FUROSEMIDE [Suspect]
     Indication: PRODUCT USED FOR UNKNOWN INDICATION
     Dosage: 120MG TWICE DAILY
  8. ACIPIMOX [Suspect]
     Indication: PRODUCT USED FOR UNKNOWN INDICATION
     Dosage: 250MG TWICE DAILY
  9. PERINDOPRIL (UNKNOWN) [Suspect]
     Indication: PRODUCT USED FOR UNKNOWN INDICATION
     Dosage: 2MG DAILY
  10. AMIODARONE HCL [Suspect]
     Indication: PRODUCT USED FOR UNKNOWN INDICATION
     Dosage: 200MG DAILY
  11. WARFARIN SODIUM [Concomitant]
     Indication: PRODUCT USED FOR UNKNOWN INDICATION

REACTIONS (15)
  - FEELING ABNORMAL [None]
  - DRUG INEFFECTIVE [None]
  - FATIGUE [None]
  - VENOUS PRESSURE JUGULAR INCREASED [None]
  - OEDEMA [None]
  - CARDIAC MURMUR [None]
  - VENTRICULAR TACHYCARDIA [None]
  - OEDEMA PERIPHERAL [None]
  - PARAESTHESIA [None]
  - LEFT VENTRICULAR DYSFUNCTION [None]
  - DISSOCIATION [None]
  - ATRIAL FIBRILLATION [None]
  - DYSPNOEA [None]
  - DYSPNOEA EXERTIONAL [None]
  - DIZZINESS [None]
